FAERS Safety Report 9131935 (Version 1)
Quarter: 2013Q1

REPORT INFORMATION
  Report Type: Report from Study
  Country: US (occurrence: US)
  Receive Date: 20130301
  Receipt Date: 20130301
  Transmission Date: 20140127
  Serious: No
  Sender: FDA-Public Use
  Company Number: US-MYLANLABS-2012S1022553

PATIENT
  Age: 28 Year
  Sex: Female
  Weight: 58.06 kg

DRUGS (2)
  1. AMNESTEEM CAPSULES [Suspect]
     Indication: ACNE
     Route: 048
     Dates: start: 20120823, end: 20121010
  2. NORGESTREL/ETHINYL ESTRADIOL [Concomitant]
     Dosage: 0.3-30 MG/MCG
     Route: 048

REACTIONS (2)
  - Vision blurred [Recovered/Resolved]
  - Eye pain [Recovered/Resolved]
